FAERS Safety Report 8610890-4 (Version None)
Quarter: 2012Q3

REPORT INFORMATION
  Report Type: 
  Country: None (occurrence: None)
  Receive Date: 20120423
  Receipt Date: 20100628
  Transmission Date: 20120928
  Serious: Yes (Other)
  Sender: FDA-Public Use
  Company Number: PHHY2010US43111

PATIENT
  Age: 73 Year
  Sex: Female

DRUGS (1)
  1. FEMARA [Suspect]
     Dosage: 2.5 MG/DAY, ORAL
     Route: 048
     Dates: start: 20100120

REACTIONS (2)
  - CAST APPLICATION [None]
  - LOWER LIMB FRACTURE [None]
